FAERS Safety Report 5975129-7 (Version None)
Quarter: 2008Q4

REPORT INFORMATION
  Report Type: 
  Country: None (occurrence: None)
  Receive Date: 20081202
  Receipt Date: 20081125
  Transmission Date: 20090506
  Serious: Yes (Other)
  Sender: FDA-Public Use
  Company Number: US-BAYER-200813581BCC

PATIENT
  Age: 66 Year
  Sex: Female
  Weight: 84 kg

DRUGS (12)
  1. ALEVE [Suspect]
     Indication: ARTHRALGIA
     Route: 048
     Dates: start: 20080618
  2. ETODOLAC [Concomitant]
     Route: 048
  3. MICARDIS [Concomitant]
  4. CLONIDINE [Concomitant]
     Dosage: UNIT DOSE: 0.1 MG
  5. HYDROXYZINE PAN [Concomitant]
     Dosage: TOTAL DAILY DOSE: 150 MG  UNIT DOSE: 25 MG
     Route: 048
  6. ALPRAZOLAM [Concomitant]
     Dosage: TOTAL DAILY DOSE: 1.5 MG  UNIT DOSE: 0.5 MG
  7. TRAMADOL HCL [Concomitant]
  8. THYROID TAB [Concomitant]
  9. ZEGERID [Concomitant]
     Dosage: TOTAL DAILY DOSE: 40 MG  UNIT DOSE: 40 MG
  10. LUMIGAN [Concomitant]
     Route: 047
  11. COSOPT [Concomitant]
     Route: 047
  12. ALPHAGAN P [Concomitant]
     Route: 047

REACTIONS (2)
  - BLOOD PRESSURE INCREASED [None]
  - INTRAOCULAR PRESSURE INCREASED [None]
